FAERS Safety Report 8321649-X (Version None)
Quarter: 2012Q2

REPORT INFORMATION
  Report Type: 
  Country: None (occurrence: None)
  Receive Date: 20120430
  Receipt Date: 20120418
  Transmission Date: 20120825
  Serious: Yes (Hospitalization)
  Sender: FDA-Public Use
  Company Number: US-GENZYME-POMP-1001544

PATIENT
  Sex: Male
  Weight: 21.5 kg

DRUGS (4)
  1. MYOZYME [Suspect]
     Indication: GLYCOGEN STORAGE DISEASE TYPE II
     Dosage: 40 MG/KG, Q2W
     Route: 042
     Dates: start: 20071130, end: 20120328
  2. COREG [Concomitant]
     Indication: CARDIOMYOPATHY
     Dosage: UNK
  3. ENALAPRIL MALEATE [Concomitant]
     Indication: CARDIOMYOPATHY
     Dosage: UNK
  4. PREVACID [Concomitant]
     Indication: PRODUCT USED FOR UNKNOWN INDICATION
     Dosage: UNK

REACTIONS (2)
  - PNEUMONIA [None]
  - RESPIRATORY FAILURE [None]
